FAERS Safety Report 4521710-1 (Version None)
Quarter: 2004Q4

REPORT INFORMATION
  Report Type: 
  Country: None (occurrence: None)
  Receive Date: 20041208
  Receipt Date: 20041208
  Transmission Date: 20050328
  Serious: Yes (Life-Threatening)
  Sender: FDA-Public Use
  Company Number: None

PATIENT
  Sex: Male
  Weight: 95.2554 kg

DRUGS (12)
  1. CANDASARTAN 16 MG DAILY [Suspect]
     Indication: HYPERTENSION
     Dosage: 16 MG PO DAILY
     Route: 048
     Dates: start: 20041026, end: 20041110
  2. GLUCOVANCE [Concomitant]
  3. PREVACID [Concomitant]
  4. KLOR-CON [Concomitant]
  5. LASIX [Concomitant]
  6. ATENOLOL [Concomitant]
  7. IMDUR [Concomitant]
  8. LIPITOR [Concomitant]
  9. CARDURA [Concomitant]
  10. NORVASC [Concomitant]
  11. ASPIRIN [Concomitant]
  12. LAMISIL [Concomitant]

REACTIONS (1)
  - ANGIONEUROTIC OEDEMA [None]
